FAERS Safety Report 6196502-0 (Version None)
Quarter: 2009Q2

REPORT INFORMATION
  Report Type: 
  Country: None (occurrence: None)
  Receive Date: 20090519
  Receipt Date: 20090519
  Transmission Date: 20091009
  Serious: Yes (Other)
  Sender: FDA-Public Use
  Company Number: None

PATIENT
  Age: 63 Year
  Sex: Male
  Weight: 99.7913 kg

DRUGS (1)
  1. SIMCOR [Suspect]
     Indication: HIGH DENSITY LIPOPROTEIN
     Dosage: 2 TABLETS NIGHTLY PO
     Route: 048
     Dates: start: 20090127, end: 20090423

REACTIONS (4)
  - ARTHRALGIA [None]
  - GAIT DISTURBANCE [None]
  - MUSCULAR WEAKNESS [None]
  - PAIN IN EXTREMITY [None]
